FAERS Safety Report 16950537 (Version 1)
Quarter: 2019Q4

REPORT INFORMATION
  Report Type: Spontaneous
  Country: US (occurrence: US)
  Receive Date: 20191023
  Receipt Date: 20191023
  Transmission Date: 20200122
  Serious: Yes (Other)
  Sender: FDA-Public Use
  Company Number: US-ALIMERA SCIENCES LIMITED-US-IL-2018-004206

PATIENT
  Age: 31 Year
  Sex: Male

DRUGS (1)
  1. ILUVIEN [Suspect]
     Active Substance: FLUOCINOLONE ACETONIDE
     Indication: DIABETIC RETINAL OEDEMA
     Dosage: 0.25 ?G, QD -LEFT EYE
     Route: 031
     Dates: start: 20170718, end: 20180905

REACTIONS (3)
  - Intraocular pressure increased [Unknown]
  - Eye pain [Unknown]
  - Medical device removal [Recovered/Resolved]

NARRATIVE: CASE EVENT DATE: 20180904
